FAERS Safety Report 19958458 (Version 2)
Quarter: 2021Q4

REPORT INFORMATION
  Report Type: Spontaneous
  Country: US (occurrence: US)
  Receive Date: 20211015
  Receipt Date: 20211104
  Transmission Date: 20220303
  Serious: No
  Sender: FDA-Public Use
  Company Number: US-BEH-2021136836

PATIENT
  Sex: Female

DRUGS (1)
  1. HIZENTRA [Suspect]
     Active Substance: HUMAN IMMUNOGLOBULIN G
     Dosage: UNK
     Route: 065
     Dates: start: 20211006

REACTIONS (3)
  - Injection site pruritus [Not Recovered/Not Resolved]
  - Injection site urticaria [Unknown]
  - Injection site erythema [Not Recovered/Not Resolved]

NARRATIVE: CASE EVENT DATE: 20211001
